FAERS Safety Report 17199158 (Version 1)
Quarter: 2019Q4

REPORT INFORMATION
  Report Type: Spontaneous
  Country: JP (occurrence: JP)
  Receive Date: 20191225
  Receipt Date: 20191225
  Transmission Date: 20200122
  Serious: Yes (Death)
  Sender: FDA-Public Use
  Company Number: JP-AMGEN-JPNSP2019209135

PATIENT
  Age: 80 Year
  Sex: Male

DRUGS (8)
  1. ANAEMETRO [Suspect]
     Active Substance: METRONIDAZOLE
     Indication: PRODUCT USED FOR UNKNOWN INDICATION
     Dosage: UNK
     Route: 065
  2. VALSARTAN. [Concomitant]
     Active Substance: VALSARTAN
     Dosage: 80 MILLIGRAM
     Route: 048
  3. ACETATE MAINTENANCE SOLUTION 3G HK [Concomitant]
     Dosage: UNK
     Route: 041
  4. CEFEPIME HYDROCHLORIDE. [Concomitant]
     Active Substance: CEFEPIME HYDROCHLORIDE
     Dosage: UNK
     Route: 065
  5. AMLODIPINE [Concomitant]
     Active Substance: AMLODIPINE BESYLATE
     Dosage: 5 MILLIGRAM
     Route: 048
     Dates: start: 20191210
  6. FILGRASTIM BS [Concomitant]
     Active Substance: FILGRASTIM
     Dosage: 75 MICROGRAM
     Route: 065
  7. NESP [Suspect]
     Active Substance: DARBEPOETIN ALFA
     Indication: NEPHROGENIC ANAEMIA
     Dosage: 30 MICROGRAM
     Route: 065
     Dates: start: 20191031, end: 20191127
  8. VITAMEDIN INTRAVENOUS [Concomitant]
     Active Substance: CYANOCOBALAMIN\PYRIDOXINE HYDROCHLORIDE\THIAMINE
     Dosage: UNK
     Route: 041

REACTIONS (2)
  - Blood pressure increased [Unknown]
  - Septic shock [Fatal]

NARRATIVE: CASE EVENT DATE: 20191129
